FAERS Safety Report 10716774 (Version 1)
Quarter: 2015Q1

REPORT INFORMATION
  Report Type: Spontaneous
  Country: MX (occurrence: MX)
  Receive Date: 20150116
  Receipt Date: 20150116
  Transmission Date: 20150721
  Serious: Yes (Death)
  Sender: FDA-Public Use
  Company Number: MX-PFIZER INC-2015019190

PATIENT
  Age: 90 Year
  Sex: Female

DRUGS (4)
  1. OMEPRAZOL [Concomitant]
     Active Substance: OMEPRAZOLE
     Indication: GASTRIC ULCER
  2. LYRICA [Suspect]
     Active Substance: PREGABALIN
     Indication: SCIATICA
     Dosage: 1 CAPSULE PER DAY
     Route: 048
     Dates: start: 2006
  3. CELECOXIB. [Suspect]
     Active Substance: CELECOXIB
     Indication: MYALGIA
     Dosage: 1 CAPSULE IN CASE OF PAIN
     Route: 048
     Dates: start: 2008
  4. OMEPRAZOL [Concomitant]
     Active Substance: OMEPRAZOLE
     Indication: GASTRITIS
     Dosage: 1, 1X/DAY
     Route: 048
     Dates: start: 2014

REACTIONS (1)
  - Cerebral haemorrhage [Fatal]

NARRATIVE: CASE EVENT DATE: 20140720
